FAERS Safety Report 5952888-0 (Version None)
Quarter: 2008Q4

REPORT INFORMATION
  Report Type: 
  Country: None (occurrence: None)
  Receive Date: 20081114
  Receipt Date: 20081107
  Transmission Date: 20090506
  Serious: Yes (Other)
  Sender: FDA-Public Use
  Company Number: US-JNJFOC-20081103114

PATIENT
  Sex: Female
  Weight: 81.65 kg

DRUGS (1)
  1. CONCERTA [Suspect]
     Indication: ATTENTION DEFICIT/HYPERACTIVITY DISORDER
     Route: 048

REACTIONS (3)
  - MUSCULOSKELETAL DISCOMFORT [None]
  - PALPITATIONS [None]
  - TOURETTE'S DISORDER [None]
